FAERS Safety Report 12520962 (Version 2)
Quarter: 2016Q3

REPORT INFORMATION
  Report Type: Spontaneous
  Country: JP (occurrence: JP)
  Receive Date: 20160701
  Receipt Date: 20160714
  Transmission Date: 20161109
  Serious: Yes (Life-Threatening, Hospitalization, Other)
  Sender: FDA-Public Use
  Company Number: JP-GLAXOSMITHKLINE-JP2016JPN091307

PATIENT
  Age: 53 Year
  Sex: Female

DRUGS (9)
  1. REQUIP [Suspect]
     Active Substance: ROPINIROLE HYDROCHLORIDE
     Dosage: 6 MG, 1D
     Route: 048
     Dates: start: 201411, end: 2015
  2. BIPERIDEN HYDROCHLORIDE [Concomitant]
     Active Substance: BIPERIDEN HYDROCHLORIDE
     Dosage: 3 MG, 1D
     Dates: start: 201310, end: 2015
  3. UNKNOWN DRUG [Concomitant]
     Active Substance: UNSPECIFIED INGREDIENT
  4. ROTIGOTINE [Concomitant]
     Active Substance: ROTIGOTINE
  5. BROTIZOLAM [Concomitant]
     Active Substance: BROTIZOLAM
     Dosage: 0.25 MG, 1D
  6. YOKUKANSAN [Concomitant]
     Active Substance: HERBALS
     Dosage: UNK
  7. CLONAZEPAM. [Concomitant]
     Active Substance: CLONAZEPAM
     Dosage: 1.5 MG, 1D
  8. L DOPA [Suspect]
     Active Substance: LEVODOPA
     Indication: PARKINSONISM
     Dosage: UNK UNK, 1D
     Route: 048
     Dates: start: 201309, end: 2015
  9. REQUIP [Suspect]
     Active Substance: ROPINIROLE HYDROCHLORIDE
     Indication: PARKINSONISM
     Dosage: 1 MG, 1D
     Route: 048
     Dates: start: 201411, end: 201411

REACTIONS (21)
  - Tongue biting [Recovering/Resolving]
  - Tongue discolouration [Recovering/Resolving]
  - Neuroleptic malignant syndrome [Unknown]
  - Hypotonia [Unknown]
  - Miosis [Unknown]
  - Fibrin D dimer increased [Unknown]
  - Mood swings [Unknown]
  - Muscular weakness [Unknown]
  - Drug hypersensitivity [Unknown]
  - Protrusion tongue [Recovering/Resolving]
  - Vascular insufficiency [Recovering/Resolving]
  - Oedema peripheral [Unknown]
  - Vocal cord disorder [Recovering/Resolving]
  - Laryngeal dyspnoea [Recovering/Resolving]
  - Unresponsive to stimuli [Unknown]
  - Dyskinesia [Recovering/Resolving]
  - Blood creatine phosphokinase increased [Unknown]
  - Oromandibular dystonia [Recovering/Resolving]
  - Altered state of consciousness [Recovering/Resolving]
  - Tongue movement disturbance [Recovering/Resolving]
  - Tongue haemorrhage [Recovering/Resolving]

NARRATIVE: CASE EVENT DATE: 201412
